FAERS Safety Report 4582027-2 (Version None)
Quarter: 2005Q1

REPORT INFORMATION
  Report Type: 
  Country: None (occurrence: None)
  Receive Date: 20050119
  Receipt Date: 20040614
  Transmission Date: 20050727
  Serious: Yes (Hospitalization)
  Sender: FDA-Public Use
  Company Number: A03200401923

PATIENT
  Age: 84 Year
  Sex: Female
  Weight: 71.6683 kg

DRUGS (3)
  1. PLAVIX [Suspect]
     Indication: STENT PLACEMENT
     Dosage: 75 MG QD - ORAL
     Route: 048
     Dates: start: 20040501, end: 20040501
  2. ESOMEPRAZOLE [Concomitant]
  3. HEPARIN [Concomitant]

REACTIONS (1)
  - LOWER GASTROINTESTINAL HAEMORRHAGE [None]
